FAERS Safety Report 6050723-6 (Version None)
Quarter: 2009Q1

REPORT INFORMATION
  Report Type: 
  Country: None (occurrence: None)
  Receive Date: 20090126
  Receipt Date: 20080110
  Transmission Date: 20090719
  Serious: No
  Sender: FDA-Public Use
  Company Number: US-TYCO HEALTHCARE/MALLINCKRODT-T200800034

PATIENT

DRUGS (1)
  1. OPTIRAY 300 [Suspect]

REACTIONS (1)
  - INJECTION SITE RASH [None]
